FAERS Safety Report 16376063 (Version 1)
Quarter: 2019Q2

REPORT INFORMATION
  Report Type: Report from Study
  Country: BR (occurrence: BR)
  Receive Date: 20190531
  Receipt Date: 20190531
  Transmission Date: 20190711
  Serious: Yes (Hospitalization)
  Sender: FDA-Public Use
  Company Number: BR-EMD SERONO-9093574

PATIENT
  Sex: Female

DRUGS (2)
  1. RIVOTRIL [Suspect]
     Active Substance: CLONAZEPAM
     Indication: PRODUCT USED FOR UNKNOWN INDICATION
  2. REBIF [Suspect]
     Active Substance: INTERFERON BETA-1A
     Indication: MULTIPLE SCLEROSIS
     Route: 058
     Dates: start: 20130204

REACTIONS (7)
  - Hospitalisation [Unknown]
  - Drug hypersensitivity [Recovered/Resolved]
  - Injection site pain [Unknown]
  - Urinary incontinence [Not Recovered/Not Resolved]
  - Overdose [Unknown]
  - Weight decreased [Not Recovered/Not Resolved]
  - Injection site bruising [Unknown]
